FAERS Safety Report 21943727 (Version 1)
Quarter: 2023Q1

REPORT INFORMATION
  Report Type: Spontaneous
  Country: SE (occurrence: SE)
  Receive Date: 20230202
  Receipt Date: 20230202
  Transmission Date: 20230418
  Serious: Yes (Hospitalization)
  Sender: FDA-Public Use
  Company Number: SE-AUROBINDO-AUR-APL-2023-002745

PATIENT
  Age: 74 Year
  Sex: Female

DRUGS (10)
  1. OLANZAPINE [Suspect]
     Active Substance: OLANZAPINE
     Indication: Anxiety
     Dosage: 2.5 MG, QD (2.5 MILLIGRAM, ONCE A DAY)
     Route: 065
  2. DIAZEPAM [Suspect]
     Active Substance: DIAZEPAM
     Indication: Product used for unknown indication
     Dosage: 3 DOSAGE FORM, QD (3 DOSAGE FORM, ONCE A DAY)
     Route: 065
  3. LITHIUM SULFATE [Concomitant]
     Active Substance: LITHIUM SULFATE
     Indication: Product used for unknown indication
     Dosage: 2 DOSAGE FORM, QD (2 DOSAGE FORM, ONCE A DAY)
     Route: 065
     Dates: start: 20200727
  4. LOPERAMIDE [Concomitant]
     Active Substance: LOPERAMIDE
     Indication: Product used for unknown indication
     Dosage: UNK (1-2 TABLETS, IF NECESSARY, NO MORE THAN 8 TABLETS PER DAY)
     Route: 065
     Dates: start: 20210617
  5. SOLIFENACIN [Concomitant]
     Active Substance: SOLIFENACIN
     Indication: Product used for unknown indication
     Dosage: 5 MG, QD (5 MILLIGRAM, ONCE A DAY)
     Route: 065
     Dates: start: 20210618
  6. BUPROPION HYDROCHLORIDE [Concomitant]
     Active Substance: BUPROPION HYDROCHLORIDE
     Indication: Product used for unknown indication
     Dosage: 150 MG, QD (150 MILLIGRAM, ONCE A DAY)
     Route: 065
  7. ZOPICLONE [Concomitant]
     Active Substance: ZOPICLONE
     Indication: Product used for unknown indication
     Dosage: 5 MG, QD (5 MILLIGRAM, ONCE A DAY)
     Route: 065
     Dates: start: 202212
  8. BRINTELLIX [Concomitant]
     Active Substance: VORTIOXETINE HYDROBROMIDE
     Indication: Product used for unknown indication
     Dosage: 5 MG, QD (5 MILLIGRAM, ONCE A DAY)
     Route: 065
     Dates: start: 20171216
  9. BRINTELLIX [Concomitant]
     Active Substance: VORTIOXETINE HYDROBROMIDE
     Dosage: 10 MG, QD- (10 MILLIGRAM, ONCE A DAY)
     Route: 065
     Dates: start: 20171216
  10. LEVOTHYROXINE SODIUM [Concomitant]
     Active Substance: LEVOTHYROXINE SODIUM
     Indication: Product used for unknown indication
     Dosage: 75 UG, QD (75 MICROGRAM, ONCE A DAY)
     Route: 065
     Dates: start: 20171216

REACTIONS (2)
  - General physical health deterioration [Recovered/Resolved]
  - Product use in unapproved indication [Unknown]

NARRATIVE: CASE EVENT DATE: 20221201
